FAERS Safety Report 19443897 (Version 1)
Quarter: 2021Q2

REPORT INFORMATION
  Report Type: Report from Study
  Country: RU (occurrence: RU)
  Receive Date: 20210621
  Receipt Date: 20210621
  Transmission Date: 20210717
  Serious: Yes (Hospitalization)
  Sender: FDA-Public Use
  Company Number: NVSC2021RU065661

PATIENT
  Age: 32 Year
  Sex: Female
  Weight: 66 kg

DRUGS (9)
  1. LEE011 [Suspect]
     Active Substance: RIBOCICLIB
     Indication: HER2 NEGATIVE BREAST CANCER
     Dosage: 200 MG, OD
     Route: 048
     Dates: start: 20201225, end: 20210525
  2. GLYCINE. [Concomitant]
     Active Substance: GLYCINE
     Indication: NEUROPATHY PERIPHERAL
     Dosage: 200 MG, BID
     Route: 048
     Dates: start: 20210116
  3. DIBAZOL [Concomitant]
     Indication: HEADACHE
     Dosage: 2.5 MG, BID
     Route: 048
     Dates: start: 20210116
  4. GOSERELIN [Suspect]
     Active Substance: GOSERELIN
     Indication: HER2 NEGATIVE BREAST CANCER
     Dosage: 3.6 MG, Q4W
     Route: 058
     Dates: start: 20201225, end: 20210525
  5. MEXIDOL [Concomitant]
     Active Substance: EMOXYPINE SUCCINATE
     Indication: PRODUCT USED FOR UNKNOWN INDICATION
     Dosage: UNK
     Route: 065
  6. CALCIUM [Concomitant]
     Active Substance: CALCIUM
     Indication: HYPOCALCAEMIA
     Dosage: 500 MG + 200 MG, BID
     Route: 048
     Dates: start: 20201215
  7. ETHYLMETHYLHYDROXIPIRIDINE [Concomitant]
     Indication: NEUROPATHY PERIPHERAL
     Dosage: 2 MG
     Route: 048
     Dates: start: 20210116
  8. CITICOLINE [Concomitant]
     Active Substance: CITICOLINE
     Indication: NEUROPATHY PERIPHERAL
     Dosage: 10 ML
     Route: 048
     Dates: start: 20210116
  9. ANASTROZOLE. [Suspect]
     Active Substance: ANASTROZOLE
     Indication: HER2 NEGATIVE BREAST CANCER
     Dosage: 1 MG, OD
     Route: 048
     Dates: start: 20201225, end: 20210525

REACTIONS (1)
  - Depressed mood [Recovering/Resolving]

NARRATIVE: CASE EVENT DATE: 20210314
